FAERS Safety Report 8337004-2 (Version None)
Quarter: 2012Q2

REPORT INFORMATION
  Report Type: 
  Country: None (occurrence: None)
  Receive Date: 20120504
  Receipt Date: 20120426
  Transmission Date: 20120825
  Serious: Yes (Hospitalization)
  Sender: FDA-Public Use
  Company Number: DE-PFIZER INC-2012104374

PATIENT
  Age: 72 Year
  Sex: Female
  Weight: 54 kg

DRUGS (8)
  1. IRINOTECAN HCL [Suspect]
     Indication: COLORECTAL CANCER
     Dosage: 180 MG/M2, EVERY OTHER WEEK
     Route: 042
     Dates: start: 20120207, end: 20120416
  2. PANTOPRAZOLE [Concomitant]
     Dosage: 40 MG, 1X/DAY
     Route: 048
  3. CETUXIMAB [Suspect]
     Indication: COLORECTAL CANCER
     Dosage: 250 MG/M2, WEEKLY
     Route: 042
     Dates: start: 20120207, end: 20120419
  4. FLUOROURACIL [Suspect]
     Indication: COLORECTAL CANCER
     Dosage: 400 MG/M2, EVERY OTHER WEEK
     Route: 040
     Dates: start: 20120207, end: 20120416
  5. FOLINIC ACID [Suspect]
     Indication: COLORECTAL CANCER
     Dosage: 400 MG/M2, EVERY OTHER DAY
     Route: 042
     Dates: start: 20120207, end: 20120416
  6. FLUOROURACIL [Suspect]
     Dosage: 2400 MG/M2, EVERY OTHER WEEK
     Route: 042
     Dates: start: 20120207, end: 20120416
  7. LEVOTHYROXINE SODIUM [Concomitant]
     Dosage: 100 MG, 1X/DAY
     Route: 048
  8. SPIRONOLACTONE [Concomitant]
     Dosage: 50 MG, 1X/DAY
     Route: 048

REACTIONS (2)
  - ENTERITIS [None]
  - HYPOKALAEMIA [None]
